FAERS Safety Report 6135216-X (Version None)
Quarter: 2009Q1

REPORT INFORMATION
  Report Type: 
  Country: None (occurrence: None)
  Receive Date: 20090327
  Receipt Date: 20080129
  Transmission Date: 20090719
  Serious: No
  Sender: FDA-Public Use
  Company Number: US-TYCO HEALTHCARE/MALLINCKRODT-T200800104

PATIENT

DRUGS (2)
  1. OPTIMARK [Suspect]
     Indication: ARTHROGRAM
     Dosage: .1 ML, SINGLE
     Route: 014
     Dates: start: 20080129, end: 20080129
  2. ANTIHYPERTENSIVES [Concomitant]
     Indication: BLOOD PRESSURE

REACTIONS (5)
  - MUSCLE SPASMS [None]
  - NAUSEA [None]
  - TREMOR [None]
  - UNRESPONSIVE TO STIMULI [None]
  - VOMITING [None]
